FAERS Safety Report 5278441-2 (Version None)
Quarter: 2007Q1

REPORT INFORMATION
  Report Type: 
  Country: None (occurrence: None)
  Receive Date: 20070328
  Receipt Date: 20070316
  Transmission Date: 20070707
  Serious: Yes (Other)
  Sender: FDA-Public Use
  Company Number: PHRM2007FR01083

PATIENT
  Sex: Male

DRUGS (2)
  1. COTAREG [Suspect]
     Dosage: 1 DF, QD
     Route: 048
  2. TAREG [Suspect]
     Dosage: 160 MG, QD
     Route: 048

REACTIONS (2)
  - CONFUSIONAL STATE [None]
  - HYPONATRAEMIA [None]
